FAERS Safety Report 8973935 (Version 1)
Quarter: 2012Q4

REPORT INFORMATION
  Report Type: Report from Study
  Country: US (occurrence: US)
  Receive Date: 20121218
  Receipt Date: 20121218
  Transmission Date: 20130627
  Serious: Yes (Hospitalization, Other)
  Sender: FDA-Public Use
  Company Number: US-US-EMD SERONO, INC.-7181910

PATIENT
  Age: 62 Year
  Sex: Female

DRUGS (1)
  1. REBIF [Suspect]
     Indication: MULTIPLE SCLEROSIS
     Route: 058
     Dates: start: 20080317

REACTIONS (4)
  - Arrhythmia [Recovering/Resolving]
  - Knee arthroplasty [Unknown]
  - Multiple sclerosis [Unknown]
  - Secondary progressive multiple sclerosis [Not Recovered/Not Resolved]
